FAERS Safety Report 5130962-9 (Version None)
Quarter: 2006Q3

REPORT INFORMATION
  Report Type: 
  Country: None (occurrence: None)
  Receive Date: 20060829
  Receipt Date: 20060703
  Transmission Date: 20061208
  Serious: No
  Sender: FDA-Public Use
  Company Number: PHEH2006US07754

PATIENT
  Age: 37 Year
  Sex: Male
  Weight: 100.2 kg

DRUGS (3)
  1. EXJADE [Suspect]
     Indication: BLOOD IRON INCREASED
     Dosage: 2000 MG, QD, ORAL
     Route: 048
     Dates: start: 20060606
  2. RITUXAN [Concomitant]
  3. PRILOSEC [Concomitant]

REACTIONS (6)
  - ASTHENIA [None]
  - MALAISE [None]
  - MYALGIA [None]
  - NEUTROPHIL COUNT DECREASED [None]
  - PYREXIA [None]
  - WHITE BLOOD CELL COUNT DECREASED [None]
